FAERS Safety Report 6331060-9 (Version None)
Quarter: 2009Q3

REPORT INFORMATION
  Report Type: 
  Country: None (occurrence: None)
  Receive Date: 20090827
  Receipt Date: 20090820
  Transmission Date: 20100115
  Serious: Yes (Other)
  Sender: FDA-Public Use
  Company Number: B0587676A

PATIENT
  Sex: Female

DRUGS (2)
  1. TYKERB [Suspect]
     Indication: BREAST CANCER
     Route: 048
     Dates: start: 20090728, end: 20090731
  2. CAPECITABINE [Concomitant]
     Route: 048
     Dates: start: 20090728, end: 20090731

REACTIONS (1)
  - INTERSTITIAL LUNG DISEASE [None]
